FAERS Safety Report 4929106-5 (Version None)
Quarter: 2006Q1

REPORT INFORMATION
  Report Type: 
  Country: None (occurrence: None)
  Receive Date: 20060301
  Receipt Date: 20050826
  Transmission Date: 20060701
  Serious: Yes (Life-Threatening, Hospitalization)
  Sender: FDA-Public Use
  Company Number: CH-ROCHE-415637

PATIENT
  Age: 66 Year
  Sex: Male

DRUGS (77)
  1. DACLIZUMAB [Suspect]
     Route: 042
     Dates: start: 20050502, end: 20050502
  2. DACLIZUMAB [Suspect]
     Route: 042
     Dates: start: 20050509, end: 20050509
  3. MYCOPHENOLATE MOFETIL [Suspect]
     Route: 042
     Dates: start: 20050503, end: 20050507
  4. MYCOPHENOLATE MOFETIL [Suspect]
     Route: 048
     Dates: start: 20050829, end: 20050829
  5. MYCOPHENOLATE MOFETIL [Suspect]
     Route: 048
     Dates: start: 20050906
  6. TACROLIMUS [Suspect]
     Dosage: ADJUSTED TO MEET PREDEFINED TARGET LEVELS.
     Route: 048
     Dates: start: 20050507
  7. METHYLPREDNISOLONE [Suspect]
     Dosage: TAPER ACCORDING TO LOCAL PROTOCOL.
     Route: 065
     Dates: start: 20050502, end: 20050507
  8. PREDNISONE [Suspect]
     Dosage: TAPER ACCORDING TO LOCAL PROTOCOL.
     Route: 065
     Dates: start: 20050508, end: 20050803
  9. PREDNISOLONE [Suspect]
     Route: 065
     Dates: start: 20050823, end: 20050823
  10. PREDNISOLONE [Suspect]
     Route: 065
     Dates: start: 20050827, end: 20050827
  11. INSULIN ASPART [Concomitant]
     Dates: start: 20040515, end: 20050501
  12. PIOGLITAZON [Concomitant]
     Dates: start: 20040615, end: 20050501
  13. DESLORATADINE [Concomitant]
     Dosage: REPORTED AS DESLORATADIN (ANTI-ALLERGIC MEDICATION).
     Dates: start: 20040615, end: 20050501
  14. NAPROXEN [Concomitant]
     Dates: start: 20030715, end: 20050501
  15. ALLOPURINOL [Concomitant]
     Indication: GOUT
     Dates: start: 20030715
  16. EVIT 200 [Concomitant]
     Dates: start: 20040315, end: 20050714
  17. ESOMEPRAZOLE [Concomitant]
     Indication: PROPHYLAXIS
     Dates: start: 20040315, end: 20050503
  18. ISOFLURAN [Concomitant]
     Indication: ANAESTHESIA
     Dosage: STOPPED ON 2 MAY 2005. RE-STARTED ON 23 AUGUST 2005.
     Route: 055
     Dates: start: 20050502, end: 20050823
  19. FENTANYL CITRATE [Concomitant]
     Dosage: STOPPED ON 2 MAY 2005. RE-STARTED ON 23 AUGUST 2005.
     Dates: start: 20050502, end: 20050823
  20. MIDAZOLAM HCL [Concomitant]
     Indication: SEDATION
     Dosage: STOPPED ON 2 MAY 2005. RE-STARTED ON 23 AUGUST 2005.
     Dates: start: 20050501, end: 20050906
  21. REMIFENTANIL [Concomitant]
     Indication: ANAESTHESIA
     Dosage: STOPPED ON 2 MAY 2005. RE-STARTED ON 23 AUGUST 2005.
     Dates: start: 20050502, end: 20050824
  22. NOREPINEPHRINE [Concomitant]
     Indication: HYPERTENSION
     Dosage: INDICATION: STABILISATION OF BLOOD PRESSURE. STOPPED ON 4 MAY 2005. RE-STARTED ON 23 AUGUST 2005.
     Dates: start: 20050502, end: 20050914
  23. ROCURONIUM BROMIDE [Concomitant]
     Dosage: STOPPED ON 2 MAY 2005. RE-STARTED ON 27 AUGUST 2005.
     Dates: start: 20050502, end: 20050827
  24. EPINEPHRINE [Concomitant]
     Dosage: INDICATION: SUPPORTING BLOOD PRESSURE DURING ANAESTHESIA.
     Dates: start: 20050502, end: 20050502
  25. NITROGLYCERIN [Concomitant]
     Dosage: INDICATION: LOWERING BLOOD PRESSURE.
     Dates: start: 20050502, end: 20050507
  26. HUMAN INSULIN [Concomitant]
     Dates: start: 20050502
  27. HETASTARCH IN SODIUM CHLORIDE [Concomitant]
     Dates: start: 20050502, end: 20050502
  28. EPHEDRIN [Concomitant]
     Indication: HYPERTENSION
     Dosage: INDICATION: LOWERING BLOOD PRESSURE DURING ANAESTHESIA. STOPPED ON 2 MAY 2005. RE-STARTED ON 23 AUG+
     Dates: start: 20050502, end: 20050823
  29. MAGNESIUM [Concomitant]
     Dosage: STOPPED ON 8 MAY 2005. RE-STARTED ON 27 AUGUST 2005.
     Dates: start: 20050502, end: 20050901
  30. POTASSIUM CHLORIDE [Concomitant]
     Dosage: STOPPED ON 8 MAY 2005. RESTARTED ON 23 AUGUST 2005.
     Dates: start: 20050502, end: 20050910
  31. MANNITOL [Concomitant]
     Dosage: INDICATION: SUPPORT DIURESIS DURING ANAESTHESIA.
     Dates: start: 20050502, end: 20050502
  32. CEFUROXIM [Concomitant]
     Indication: ANTIBIOTIC PROPHYLAXIS
     Dates: start: 20050502, end: 20050503
  33. LIDOCAINE [Concomitant]
     Dates: start: 20050502, end: 20050502
  34. CALCIUM GLUCONATE [Concomitant]
     Dosage: STOPPED ON 2 MAY 2005. RE-STARTED ON 23 AUGUST 2005.
     Dates: start: 20050502, end: 20050823
  35. ATRACURIUM BESYLATE [Concomitant]
     Dosage: STOPPED ON 2 MAY 2005. RE-STARTED ON 23 AUGUST 2005 FOR ANESTHEISIA.
     Dates: start: 20050502, end: 20050823
  36. NICOMORPHINE [Concomitant]
     Dates: start: 20050502, end: 20050503
  37. TRACE ELEMENTS NOS [Concomitant]
     Dosage: STOPPED ON 7 MAY 2005. RE-STARTED ON 24 AUGUST 2005.
     Dates: start: 20050502, end: 20050911
  38. PHYTOMENADION [Concomitant]
     Dates: start: 20050502, end: 20050503
  39. PROPOFOL [Concomitant]
     Indication: ANAESTHESIA
     Dosage: STOPPED ON 6 MAY 2005. RE-STARTED ON 23 AUGUST 2005.
     Dates: start: 20050502, end: 20050915
  40. HEPARIN [Concomitant]
     Indication: THROMBOSIS PROPHYLAXIS
     Dosage: STOPPED ON 8 MAY 2005. RE-STARTED ON 24 AUGUST 2005.
     Dates: start: 20050502, end: 20050908
  41. MORPHINE [Concomitant]
     Dosage: STOPPED ON 5 MAY 2005. RE-STARTED ON 24 AUGUST 2005.
     Dates: start: 20050503, end: 20050914
  42. THIAMIN [Concomitant]
     Dates: start: 20050503, end: 20050508
  43. ASCORBIC ACID [Concomitant]
     Dosage: STOPPED ON 6 MAY 2005. RE-STARTED ON 24 AUGUST 2005.
     Dates: start: 20050503, end: 20050920
  44. METAMIZOL [Concomitant]
     Dosage: STOPPED ON 16 JUNE 2005. RESTARTED ON 23 AUGUST 2005.
     Dates: start: 20050503
  45. ACETYLCYSTEINE [Concomitant]
     Dosage: INDICATION: LUNG SECRETION. STOPPED ON 6 MAY 2005. RE-STARTED FOR VISCOUS BRONCHOSECRETION ON 23 AU+
     Dates: start: 20050503, end: 20050827
  46. RANITIDINE HCL [Concomitant]
     Indication: PROPHYLAXIS
     Dates: start: 20050503, end: 20050828
  47. FRUSEMID [Concomitant]
     Dosage: FOR DIURESIS AFTER SURGERY. STOPPED ON 6 MAY 2005. RE-STARTED ON 27 AUGUST 2005.
     Dates: start: 20050503, end: 20050913
  48. CLONIDIN [Concomitant]
     Indication: HYPERTENSION
     Dates: start: 20050504, end: 20050504
  49. ESMOLOL HCL [Concomitant]
     Indication: HYPERTENSION
     Dates: start: 20050505, end: 20050508
  50. METOPROLOL [Concomitant]
     Indication: HYPERTENSION
     Dates: start: 20050505
  51. PIPERACILLIN [Concomitant]
     Indication: INFECTION PROPHYLAXIS
     Dosage: STOPPED ON 13 MAY 2005. RE-STARTED ON 23 AUGUST 2005.
     Dates: start: 20050505, end: 20050831
  52. AMLODIPINE [Concomitant]
     Indication: HYPERTENSION
     Dates: start: 20050506
  53. PIPAMPERONE [Concomitant]
     Indication: HALLUCINATION
     Dates: start: 20050506, end: 20050507
  54. ZINC CHLORIDE [Concomitant]
     Indication: PROPHYLAXIS
     Dosage: STOPPED ON 7 MAY 2005. RE-STARTED ON 26 AUGUST 2005.
     Dates: start: 20050507, end: 20050912
  55. TRAMADOL HCL [Concomitant]
     Dates: start: 20050510, end: 20050827
  56. FOLIC ACID [Concomitant]
     Dosage: STOPPED ON 8 MAY 2005. RE-STARTED ON 25 AUGUST 2005.
     Dates: start: 20050508, end: 20050920
  57. DALTEPARIN [Concomitant]
     Indication: THROMBOSIS PROPHYLAXIS
     Dosage: STOPPED ON 15 MAY 2005. RE-STARTED ON 26 AUGUST 2005.
     Dates: start: 20050508, end: 20050928
  58. YEAST [Concomitant]
     Indication: DIARRHOEA
     Dosage: ANTIBIOTIC ASSOCIATED DIARRHOEA.
     Dates: start: 20050508, end: 20050515
  59. TRIMETHOPRIM + SULFAMETHOXAZOLE [Concomitant]
     Indication: INFECTION PROPHYLAXIS
     Dates: start: 20050509, end: 20050912
  60. ACIDUM URSODEOXYCHOLICUM [Concomitant]
     Dates: start: 20050510
  61. AMOXICILLIN [Concomitant]
     Indication: INFECTION PROPHYLAXIS
     Dates: start: 20050508, end: 20050508
  62. LORAZEPAM [Concomitant]
     Indication: SLEEP DISORDER THERAPY
     Dates: start: 20050508, end: 20050514
  63. HYOSCINE BUTYLBROMIDE INTRAVENOUS [Concomitant]
     Dates: start: 20050815, end: 20050823
  64. OMEPRAZOLE [Concomitant]
     Indication: PROPHYLAXIS
     Dates: start: 20050823, end: 20050823
  65. CLEMASTIN [Concomitant]
     Indication: PROPHYLAXIS
     Dates: start: 20050823, end: 20050827
  66. 1 CONCOMITANT DRUG [Concomitant]
     Indication: ANAESTHESIA
     Dosage: REPORTED AS ETMOIDAT.
     Dates: start: 20050823, end: 20050827
  67. HYDROCODONE [Concomitant]
     Indication: PROPHYLAXIS
     Dates: start: 20050823, end: 20050823
  68. ACETAMINOPHEN [Concomitant]
     Dates: start: 20050824, end: 20050922
  69. IPRATROPIUMBROMID [Concomitant]
     Dosage: INDICATION: TRACHEAL SECRETION.
     Dates: start: 20050827, end: 20050920
  70. SALBUTAMOL [Concomitant]
     Dosage: INDICATION: TRACHEAL SECRETION.
     Dates: start: 20050827, end: 20050920
  71. VITAMIN B COMPLEX CAP [Concomitant]
     Indication: PROPHYLAXIS
     Dates: start: 20050824, end: 20050920
  72. METOCLOPRAMID [Concomitant]
     Indication: NAUSEA
     Dates: start: 20050824, end: 20050905
  73. AMPHOTERICIN B [Concomitant]
     Indication: PROPHYLAXIS
     Dates: start: 20050824, end: 20050923
  74. PHENOLPHTHALEIN [Concomitant]
     Dates: start: 20050826, end: 20050827
  75. TORSEMIDE [Concomitant]
     Indication: HYPERTENSION
     Dates: start: 20050827, end: 20050922
  76. NEOSTIGMIN [Concomitant]
     Dates: start: 20050827, end: 20050827
  77. SODIUM HEPARIN [Concomitant]
     Indication: PROPHYLAXIS
     Dates: start: 20050827, end: 20050827

REACTIONS (10)
  - CONSTIPATION [None]
  - ESCHERICHIA INFECTION [None]
  - FLATULENCE [None]
  - GASTROINTESTINAL DISORDER [None]
  - ILEUS PARALYTIC [None]
  - PLEURAL EFFUSION [None]
  - PNEUMONIA ASPIRATION [None]
  - PNEUMOTHORAX [None]
  - RESPIRATORY DEPRESSION [None]
  - RESPIRATORY DISTRESS [None]
